FAERS Safety Report 20685307 (Version 3)
Quarter: 2022Q4

REPORT INFORMATION
  Report Type: Report from Study
  Country: US (occurrence: US)
  Receive Date: 20220407
  Receipt Date: 20221130
  Transmission Date: 20230113
  Serious: Yes (Hospitalization, Other)
  Sender: FDA-Public Use
  Company Number: US-TAKEDA-2022TUS023179

PATIENT
  Age: 12 Year
  Sex: Male

DRUGS (12)
  1. TEDUGLUTIDE [Suspect]
     Active Substance: TEDUGLUTIDE
     Indication: Short-bowel syndrome
     Route: 042
  2. TEDUGLUTIDE [Suspect]
     Active Substance: TEDUGLUTIDE
     Indication: Short-bowel syndrome
     Route: 042
  3. TEDUGLUTIDE [Suspect]
     Active Substance: TEDUGLUTIDE
     Indication: Short-bowel syndrome
     Route: 042
  4. TEDUGLUTIDE [Suspect]
     Active Substance: TEDUGLUTIDE
     Indication: Short-bowel syndrome
     Route: 042
  5. ZOSYN [Concomitant]
     Active Substance: PIPERACILLIN SODIUM\TAZOBACTAM SODIUM
     Indication: Prophylaxis
     Dosage: 3.37 MILLIGRAM
     Route: 042
     Dates: start: 20200215, end: 20200216
  6. VANCOMYCIN [Concomitant]
     Active Substance: VANCOMYCIN
     Indication: Prophylaxis
     Dosage: 500.00 MILLIGRAM
     Route: 042
     Dates: start: 20200215, end: 20200216
  7. MORPHINE [Concomitant]
     Active Substance: MORPHINE
     Indication: Abdominal pain
     Dosage: 2 MILLIGRAM
     Route: 042
     Dates: start: 20200214, end: 20200217
  8. MORPHINE [Concomitant]
     Active Substance: MORPHINE
     Indication: Ileus
  9. TAMIFLU [Concomitant]
     Active Substance: OSELTAMIVIR PHOSPHATE
     Indication: Influenza
     Dosage: 60.00 MILLIGRAM, BID
     Route: 065
     Dates: start: 20200129, end: 20200203
  10. SODIUM CHLORIDE [Concomitant]
     Active Substance: SODIUM CHLORIDE
     Indication: Ileus
     Dosage: 600 MILLILITER, QD
     Route: 042
     Dates: start: 20220209, end: 20220209
  11. CEFTAZIDIME [Concomitant]
     Active Substance: CEFTAZIDIME
     Indication: Catheter site cellulitis
     Dosage: 1600 MILLIGRAM, TID
     Route: 042
     Dates: start: 20220111, end: 20220117
  12. ACETAMINOPHEN [Concomitant]
     Active Substance: ACETAMINOPHEN
     Indication: Ileus
     Dosage: 9999999 MILLIGRAM
     Route: 048
     Dates: start: 202109, end: 202109

REACTIONS (2)
  - Ileus [Recovered/Resolved]
  - COVID-19 [Recovered/Resolved]

NARRATIVE: CASE EVENT DATE: 20220109
